FAERS Safety Report 13062430 (Version 1)
Quarter: 2016Q4

REPORT INFORMATION
  Report Type: Spontaneous
  Country: US (occurrence: US)
  Receive Date: 20161226
  Receipt Date: 20161226
  Transmission Date: 20170207
  Serious: Yes (Hospitalization)
  Sender: FDA-Public Use
  Company Number: US-BRISTOL-MYERS SQUIBB COMPANY-BMS-2016-108583

PATIENT
  Sex: Male

DRUGS (1)
  1. ELIQUIS [Suspect]
     Active Substance: APIXABAN
     Indication: DEEP VEIN THROMBOSIS
     Route: 065

REACTIONS (8)
  - Cough [Unknown]
  - Bronchitis [Unknown]
  - Diarrhoea [Unknown]
  - Drug abuse [Unknown]
  - Generalised oedema [Unknown]
  - Pain in extremity [Unknown]
  - Hyperhidrosis [Unknown]
  - Skin ulcer [Unknown]
